FAERS Safety Report 6077168-7 (Version None)
Quarter: 2009Q1

REPORT INFORMATION
  Report Type: 
  Country: None (occurrence: None)
  Receive Date: 20090213
  Receipt Date: 20090213
  Transmission Date: 20090719
  Serious: Yes (Other)
  Sender: FDA-Public Use
  Company Number: A0768369A

PATIENT
  Age: 54 Year
  Sex: Female

DRUGS (1)
  1. ALLI [Suspect]
     Route: 048
     Dates: start: 20090129

REACTIONS (2)
  - EPISTAXIS [None]
  - RECTAL HAEMORRHAGE [None]
